FAERS Safety Report 7201022-8 (Version None)
Quarter: 2010Q4

REPORT INFORMATION
  Report Type: 
  Country: None (occurrence: None)
  Receive Date: 20101228
  Receipt Date: 20101217
  Transmission Date: 20110411
  Serious: Yes (Death, Hospitalization)
  Sender: FDA-Public Use
  Company Number: US-BRISTOL-MYERS SQUIBB COMPANY-15429491

PATIENT
  Age: 58 Year
  Sex: Male

DRUGS (2)
  1. DASATINIB [Suspect]
     Indication: SARCOMA
     Dates: start: 20101104, end: 20101123
  2. DASATINIB [Suspect]
     Indication: CHORDOMA
     Dates: start: 20101104, end: 20101123

REACTIONS (12)
  - ACUTE MYOCARDIAL INFARCTION [None]
  - BACK PAIN [None]
  - BLOOD PRESSURE INCREASED [None]
  - DEPRESSED LEVEL OF CONSCIOUSNESS [None]
  - FALL [None]
  - MENINGITIS [None]
  - MUSCULAR WEAKNESS [None]
  - PNEUMOCEPHALUS [None]
  - PYELONEPHRITIS [None]
  - RENAL ABSCESS [None]
  - RESPIRATORY DEPRESSION [None]
  - SEPSIS [None]
